FAERS Safety Report 21081187 (Version 1)
Quarter: 2022Q3

REPORT INFORMATION
  Report Type: Spontaneous
  Country: US (occurrence: None)
  Receive Date: 20220713
  Receipt Date: 20220713
  Transmission Date: 20221027
  Serious: No
  Sender: FDA-Public Use
  Company Number: None

PATIENT
  Age: 45 Year
  Sex: Female
  Weight: 225 kg

DRUGS (1)
  1. BEBTELOVIMAB [Suspect]
     Active Substance: BEBTELOVIMAB
     Indication: SARS-CoV-2 test positive
     Dates: start: 20220713, end: 20220713

REACTIONS (6)
  - Infusion related reaction [None]
  - Fatigue [None]
  - Nasal discomfort [None]
  - Taste disorder [None]
  - Dizziness [None]
  - Head discomfort [None]

NARRATIVE: CASE EVENT DATE: 20220713
